FAERS Safety Report 22099693 (Version 5)
Quarter: 2024Q4

REPORT INFORMATION
  Report Type: Spontaneous
  Country: US (occurrence: US)
  Receive Date: 20230315
  Receipt Date: 20241230
  Transmission Date: 20250115
  Serious: Yes (Other)
  Sender: PFIZER
  Company Number: US-PFIZER INC-PV202300037607

PATIENT
  Age: 75 Year
  Sex: Female

DRUGS (2)
  1. IBRANCE [Suspect]
     Active Substance: PALBOCICLIB
     Dosage: 100 MG, CYCLIC (1 DAILY DAYS 1-21)
  2. IBRANCE [Suspect]
     Active Substance: PALBOCICLIB
     Dosage: 100MG, TAKE ONE DAILY TWO WEEKS ON AND TWO WEEKS OFF

REACTIONS (4)
  - Diabetes mellitus [Unknown]
  - White blood cell count decreased [Unknown]
  - Memory impairment [Unknown]
  - Off label use [Unknown]
